FAERS Safety Report 4910738-5 (Version None)
Quarter: 2006Q1

REPORT INFORMATION
  Report Type: 
  Country: None (occurrence: None)
  Receive Date: 20060214
  Receipt Date: 20060203
  Transmission Date: 20060701
  Serious: Yes (Hospitalization)
  Sender: FDA-Public Use
  Company Number: US-JNJFOC-20060201629

PATIENT
  Sex: Female
  Weight: 100.7 kg

DRUGS (7)
  1. REMICADE [Suspect]
     Route: 042
  2. REMICADE [Suspect]
     Indication: RHEUMATOID ARTHRITIS
     Dosage: 4 PREVIOUS INFUSIONS
     Route: 042
  3. SULFASALAZINE [Concomitant]
  4. METHOTREXATE [Concomitant]
  5. NSAIDS [Concomitant]
  6. HYDROXYCHLOROQUINE SULFATE [Concomitant]
  7. LEFLUNOMIDE [Concomitant]

REACTIONS (2)
  - BLOOD PRESSURE ABNORMAL [None]
  - BLOOD PRESSURE INCREASED [None]
